FAERS Safety Report 19908747 (Version 2)
Quarter: 2021Q4

REPORT INFORMATION
  Report Type: Report from Study
  Country: CA (occurrence: CA)
  Receive Date: 20211001
  Receipt Date: 20211007
  Transmission Date: 20220303
  Serious: Yes (Other)
  Sender: FDA-Public Use
  Company Number: CA-TEVA-2021-CA-1959084

PATIENT
  Age: 40 Year
  Sex: Male

DRUGS (5)
  1. AJOVY [Suspect]
     Active Substance: FREMANEZUMAB-VFRM
     Indication: Migraine prophylaxis
     Dosage: LAST INJECTION DATE: 01-SEP-2021
     Route: 058
     Dates: start: 20210901
  2. TOPIRAMATE [Concomitant]
     Active Substance: TOPIRAMATE
  3. SUMATRIPTAN [Concomitant]
     Active Substance: SUMATRIPTAN
  4. TYLENOL [Concomitant]
     Active Substance: ACETAMINOPHEN
  5. ADVIL [Concomitant]
     Active Substance: IBUPROFEN

REACTIONS (6)
  - Delirium [Unknown]
  - Malaise [Unknown]
  - Palpitations [Unknown]
  - Feeling hot [Unknown]
  - Oropharyngeal pain [Unknown]
  - Headache [Unknown]

NARRATIVE: CASE EVENT DATE: 20210901
